FAERS Safety Report 4805773-1 (Version None)
Quarter: 2005Q4

REPORT INFORMATION
  Report Type: 
  Country: None (occurrence: None)
  Receive Date: 20051021
  Receipt Date: 20051003
  Transmission Date: 20060501
  Serious: Yes (Death, Congenital Anomaly)
  Sender: FDA-Public Use
  Company Number: US-ROCHE-420097

PATIENT
  Age: 4 Month
  Sex: Male

DRUGS (1)
  1. LARIAM [Suspect]
     Indication: MALARIA PROPHYLAXIS
     Route: 065
     Dates: start: 20050115

REACTIONS (10)
  - DELAYED FONTANELLE CLOSURE [None]
  - DEVELOPMENTAL DELAY [None]
  - DRUG EXPOSURE DURING PREGNANCY [None]
  - HAEMOLYTIC URAEMIC SYNDROME [None]
  - HYPOTHYROIDISM [None]
  - PALLOR [None]
  - PENIS DISORDER [None]
  - PLAGIOCEPHALY [None]
  - SKIN DISCOLOURATION [None]
  - VOMITING [None]
